FAERS Safety Report 7935883-1 (Version None)
Quarter: 2011Q4

REPORT INFORMATION
  Report Type: 
  Country: None (occurrence: None)
  Receive Date: 20111123
  Receipt Date: 20111117
  Transmission Date: 20120403
  Serious: Yes (Hospitalization, Other)
  Sender: FDA-Public Use
  Company Number: BR-BAYER-2011-111402

PATIENT
  Sex: Male
  Weight: 68 kg

DRUGS (6)
  1. SORAFENIB (RAF KINASE INHIBITOR) [Suspect]
     Indication: RENAL CANCER
     Dosage: 200 MG, QD
     Route: 048
     Dates: start: 20101001, end: 20101201
  2. LOSARTAN POTASSIUM [Concomitant]
     Indication: CARDIAC DISORDER
     Dosage: 2 DF, QD
     Route: 048
     Dates: start: 19880101
  3. ACETYLSALICYLIC ACID SRT [Concomitant]
     Indication: CARDIAC DISORDER
     Dosage: 1 DF, QD
     Route: 048
     Dates: start: 19880101
  4. ZOLADEX [Concomitant]
     Indication: PROSTATE CANCER
     Dosage: 1 DF, Q3MON
     Dates: start: 20050101
  5. SUSTRATE [Concomitant]
     Indication: CARDIAC DISORDER
     Dosage: 3 DF, QD
     Route: 048
     Dates: start: 19880101
  6. GABAPENTIN [Concomitant]
     Indication: NEUROPATHY PERIPHERAL
     Dosage: 3 DF, QD
     Route: 048

REACTIONS (8)
  - BLISTER [None]
  - ALOPECIA [None]
  - SWELLING [None]
  - PLATELET COUNT DECREASED [None]
  - HYPERTENSION [None]
  - PAIN [None]
  - YELLOW SKIN [None]
  - OROPHARYNGEAL BLISTERING [None]
